FAERS Safety Report 6073159-0 (Version None)
Quarter: 2009Q1

REPORT INFORMATION
  Report Type: 
  Country: None (occurrence: None)
  Receive Date: 20090203
  Receipt Date: 20090129
  Transmission Date: 20090719
  Serious: Yes (Hospitalization)
  Sender: FDA-Public Use
  Company Number: AEIRL200800111

PATIENT
  Age: 43 Year
  Sex: Male

DRUGS (3)
  1. PROLASTIN [Suspect]
     Indication: ALPHA-1 ANTI-TRYPSIN DEFICIENCY
     Dosage: 10 GM;Q2W;IV
     Route: 042
     Dates: start: 20060101, end: 20080101
  2. SYMBICORT (CON.) [Concomitant]
  3. TIOTROPIUM (CON.) [Concomitant]

REACTIONS (5)
  - CHILLS [None]
  - DIZZINESS [None]
  - HYPERSENSITIVITY [None]
  - NAUSEA [None]
  - TACHYPNOEA [None]
